FAERS Safety Report 24078451 (Version 1)
Quarter: 2024Q3

REPORT INFORMATION
  Report Type: Spontaneous
  Country: US (occurrence: US)
  Receive Date: 20240711
  Receipt Date: 20240711
  Transmission Date: 20241017
  Serious: No
  Sender: PL DEVELOPMENTS
  Company Number: US-P+L Developments of Newyork Corporation-2159039

PATIENT

DRUGS (3)
  1. DOCOSANOL [Suspect]
     Active Substance: DOCOSANOL
     Indication: Cough
     Route: 065
  2. DOCOSANOL [Suspect]
     Active Substance: DOCOSANOL
     Indication: Influenza
  3. DOCOSANOL [Suspect]
     Active Substance: DOCOSANOL
     Indication: Nasopharyngitis

REACTIONS (1)
  - Hypersensitivity [Unknown]
